FAERS Safety Report 24097004 (Version 1)
Quarter: 2024Q3

REPORT INFORMATION
  Report Type: Spontaneous
  Country: US (occurrence: US)
  Receive Date: 20240716
  Receipt Date: 20240716
  Transmission Date: 20241016
  Serious: Yes (Hospitalization)
  Sender: GRIFOLS
  Company Number: US-IGSA-BIG0028364

PATIENT
  Sex: Female

DRUGS (1)
  1. GAMUNEX-C [Suspect]
     Active Substance: HUMAN IMMUNOGLOBULIN G
     Indication: Product used for unknown indication
     Dosage: UNK UNKNOWN, UNKNOWN
     Route: 042

REACTIONS (8)
  - Pain [Unknown]
  - Visual impairment [Not Recovered/Not Resolved]
  - C-reactive protein increased [Unknown]
  - Nephritis [Unknown]
  - Sepsis [Unknown]
  - Blood lactic acid increased [Unknown]
  - Pyrexia [Unknown]
  - Chills [Unknown]
